FAERS Safety Report 14194975 (Version 1)
Quarter: 2017Q4

REPORT INFORMATION
  Report Type: Spontaneous
  Country: US (occurrence: None)
  Receive Date: 20171115
  Receipt Date: 20171115
  Transmission Date: 20180321
  Serious: No
  Sender: FDA-Public Use
  Company Number: None

PATIENT
  Age: 44 Year
  Sex: Female

DRUGS (13)
  1. MVI [Concomitant]
     Active Substance: VITAMINS
  2. NYSTATIN. [Concomitant]
     Active Substance: NYSTATIN
  3. TRAMADOL. [Concomitant]
     Active Substance: TRAMADOL
  4. NORVASC [Concomitant]
     Active Substance: AMLODIPINE BESYLATE
  5. ZYRTEC [Concomitant]
     Active Substance: CETIRIZINE HYDROCHLORIDE
  6. OXYCODONE [Concomitant]
     Active Substance: OXYCODONE
  7. NORCO [Concomitant]
     Active Substance: ACETAMINOPHEN\HYDROCODONE BITARTRATE
  8. DIFLUCAN [Concomitant]
     Active Substance: FLUCONAZOLE
  9. AMPYRA [Suspect]
     Active Substance: DALFAMPRIDINE
     Indication: MULTIPLE SCLEROSIS
     Route: 048
     Dates: start: 201608
  10. DOXYCYCLINE. [Concomitant]
     Active Substance: DOXYCYCLINE
  11. CITRATE OF MAGNESIUM [Concomitant]
     Active Substance: MAGNESIUM CITRATE
  12. FLUORIDE [Concomitant]
     Active Substance: SODIUM FLUORIDE
  13. COLACE [Concomitant]
     Active Substance: DOCUSATE SODIUM

REACTIONS (3)
  - Ovarian cyst [None]
  - Abdominal pain [None]
  - Pain [None]

NARRATIVE: CASE EVENT DATE: 20170518
